FAERS Safety Report 7627953 (Version 2)
Quarter: 2012Q4

REPORT INFORMATION
  Report Type: 
  Country: US (occurrence: US)
  Receive Date: 20101013
  Receipt Date: 20121012
  Transmission Date: 20130627
  Serious: No
  Sender: FDA-Public Use
  Company Number: US-ASTRAZENECA-2009SE24181

PATIENT
  Age: 69 Year
  Sex: Male

DRUGS (4)
  1. SYMBICORT PMDI [Suspect]
     Dosage: TWO PUFFS, TWO TIMES A DAY
     Route: 055
     Dates: start: 200903
  2. SYMBICORT PMDI [Suspect]
     Dosage: DOSE UNKNOWN, EVERY MORNING
     Route: 055
  3. PREDNISONE [Concomitant]
  4. SPIRIVA [Concomitant]

REACTIONS (3)
  - Dyspnoea [Unknown]
  - Emphysema [Unknown]
  - Drug dose omission [Unknown]
